FAERS Safety Report 9408960 (Version 1)
Quarter: 2013Q3

REPORT INFORMATION
  Report Type: Spontaneous
  Country: US (occurrence: None)
  Receive Date: 20130717
  Receipt Date: 20130717
  Transmission Date: 20140515
  Serious: No
  Sender: FDA-Public Use
  Company Number: None

PATIENT
  Sex: 0

DRUGS (1)
  1. SODIUM CHLORIDE 0.9% [Suspect]
     Indication: NON-SMALL CELL LUNG CANCER
     Dosage: 100ML  ONCE  IV BOLUS
     Route: 040
     Dates: start: 20130710, end: 20130710

REACTIONS (2)
  - Product quality issue [None]
  - Product packaging issue [None]
